FAERS Safety Report 5737242-9 (Version None)
Quarter: 2008Q2

REPORT INFORMATION
  Report Type: 
  Country: None (occurrence: None)
  Receive Date: 20080514
  Receipt Date: 20080507
  Transmission Date: 20081010
  Serious: Yes (Hospitalization)
  Sender: FDA-Public Use
  Company Number: PHHY2008BR07470

PATIENT
  Age: 40 Year
  Sex: Female
  Weight: 68 kg

DRUGS (5)
  1. OXCARBAZEPINE [Suspect]
     Indication: AFFECTIVE DISORDER
     Dosage: 300 MG, TID
     Route: 048
     Dates: start: 20080120, end: 20080128
  2. MIRTAZAPINE [Concomitant]
     Indication: DEPRESSION
     Dosage: 30 MG, BID
     Route: 048
     Dates: start: 20080120, end: 20080128
  3. ZOLPIDEM TARTRATE [Concomitant]
     Indication: SLEEP DISORDER
     Dosage: 1 TABLET AT NIGHT
     Route: 048
     Dates: start: 20080120, end: 20080128
  4. DIAZEPAM [Concomitant]
     Indication: ANXIETY
     Dosage: 10 MG, 1 TABLET AT NIGHT
     Route: 048
     Dates: start: 20080120, end: 20080128
  5. PROPRANOLOL [Concomitant]
     Indication: TREMOR
     Dosage: 40 MG, 1/2 TAB A.M., 1/2 TAB P.M.
     Dates: start: 20080120, end: 20080128

REACTIONS (4)
  - EATING DISORDER [None]
  - SWELLING [None]
  - VEIN PAIN [None]
  - WEIGHT INCREASED [None]
